FAERS Safety Report 14152665 (Version 4)
Quarter: 2018Q1

REPORT INFORMATION
  Report Type: Spontaneous
  Country: IT (occurrence: IT)
  Receive Date: 20171102
  Receipt Date: 20180111
  Transmission Date: 20180508
  Serious: Yes (Other)
  Sender: FDA-Public Use
  Company Number: IT-PFIZER INC-2017431629

PATIENT
  Age: 43 Year
  Sex: Male

DRUGS (5)
  1. GABAPENTIN. [Suspect]
     Active Substance: GABAPENTIN
     Dosage: 100 MG, UNK
     Route: 048
     Dates: start: 20170920
  2. DIAZEPAM. [Suspect]
     Active Substance: DIAZEPAM
     Dosage: 30 MG, TOTAL
     Route: 048
     Dates: start: 20170920
  3. ALCOVER [Suspect]
     Active Substance: SODIUM OXYBATE
     Dosage: 3 BOTTLES, UNK
     Route: 048
     Dates: start: 20170920
  4. RISPERDAL [Suspect]
     Active Substance: RISPERIDONE
     Dosage: 1 MG, TOTAL
     Route: 048
     Dates: start: 20170920
  5. LIBRIUM [Suspect]
     Active Substance: CHLORDIAZEPOXIDE HYDROCHLORIDE
     Dosage: 2 MG, TOTAL
     Route: 048
     Dates: start: 20170920

REACTIONS (3)
  - Drug abuse [Unknown]
  - Asthenia [Unknown]
  - Alcohol abuse [Unknown]

NARRATIVE: CASE EVENT DATE: 20170920
